FAERS Safety Report 21681693 (Version 1)
Quarter: 2022Q4

REPORT INFORMATION
  Report Type: Spontaneous
  Country: AT (occurrence: AT)
  Receive Date: 20221205
  Receipt Date: 20221205
  Transmission Date: 20230113
  Serious: Yes (Life-Threatening, Hospitalization)
  Sender: FDA-Public Use
  Company Number: AT-MYLANLABS-2022M1134873

PATIENT
  Age: 15 Year
  Sex: Female

DRUGS (3)
  1. EPINEPHRINE [Suspect]
     Active Substance: EPINEPHRINE
     Indication: Cardiac failure acute
     Dosage: UNK
     Route: 065
  2. NOREPINEPHRINE [Suspect]
     Active Substance: NOREPINEPHRINE
     Indication: Cardiac failure acute
     Dosage: 0.3 MILLIGRAM/KILOGRAM, QMINUTE (INFUSION)
     Route: 042
  3. DOPAMINE [Suspect]
     Active Substance: DOPAMINE HYDROCHLORIDE
     Indication: Cardiac failure acute
     Dosage: 7 MILLIGRAM/KILOGRAM, QMINUTE (INFUSION)
     Route: 042

REACTIONS (1)
  - Drug ineffective [Unknown]
